FAERS Safety Report 23742150 (Version 1)
Quarter: 2024Q2

REPORT INFORMATION
  Report Type: Spontaneous
  Country: US (occurrence: US)
  Receive Date: 20240415
  Receipt Date: 20240415
  Transmission Date: 20240715
  Serious: No
  Sender: FDA-Public Use
  Company Number: US-TEVA-VS-3177434

PATIENT
  Sex: Female

DRUGS (1)
  1. MIRCETTE [Suspect]
     Active Substance: DESOGESTREL\ETHINYL ESTRADIOL
     Indication: Product used for unknown indication
     Dosage: 0.15 MG/ 0.02 MG/ 0.01 MG
     Route: 065

REACTIONS (1)
  - Product odour abnormal [Unknown]
